FAERS Safety Report 6264151-1 (Version None)
Quarter: 2009Q3

REPORT INFORMATION
  Report Type: 
  Country: None (occurrence: None)
  Receive Date: 20090710
  Receipt Date: 20090218
  Transmission Date: 20100115
  Serious: Yes (Other)
  Sender: FDA-Public Use
  Company Number: CA-PFIZER INC-2009172699

PATIENT

DRUGS (8)
  1. DILANTIN [Suspect]
     Indication: EPILEPSY
     Dosage: 400 MG, 1X/DAY
     Route: 048
     Dates: start: 20031003
  2. NIZORAL [Concomitant]
     Dosage: UNK
     Route: 061
     Dates: start: 19980212
  3. IBUPROFEN [Concomitant]
     Indication: PAIN
     Dosage: 400 MG, 3X/DAY, AS NEEDED
     Dates: start: 20070411
  4. IBUPROFEN [Concomitant]
     Indication: INFLAMMATION
  5. PERCOCET [Concomitant]
     Indication: PAIN
     Dosage: 5/325 MG EVERY 4 TO 6 HOURS AS NEEDED
     Dates: start: 20081209
  6. CELEBREX [Concomitant]
     Indication: ARTHRITIS
     Dosage: 200 MG, 1X/DAY, AS NEEDED
     Dates: start: 20081208
  7. CELEBREX [Concomitant]
     Indication: PAIN
  8. CELEBREX [Concomitant]
     Indication: INFLAMMATION

REACTIONS (3)
  - ANTICONVULSANT DRUG LEVEL ABNORMAL [None]
  - CONVULSION [None]
  - DRUG DOSE OMISSION [None]
